FAERS Safety Report 6508676-X (Version None)
Quarter: 2009Q4

REPORT INFORMATION
  Report Type: 
  Country: None (occurrence: None)
  Receive Date: 20091221
  Receipt Date: 20090721
  Transmission Date: 20100525
  Serious: Yes (Other)
  Sender: FDA-Public Use
  Company Number: US-ASTRAZENECA-2009SE05390

PATIENT
  Age: 631 Month
  Sex: Male
  Weight: 84 kg

DRUGS (8)
  1. CRESTOR [Suspect]
     Indication: BLOOD CHOLESTEROL INCREASED
     Route: 048
  2. LIPITOR [Suspect]
     Indication: BLOOD CHOLESTEROL INCREASED
     Dates: start: 20010101
  3. ZETIA [Concomitant]
  4. NIACIN [Concomitant]
  5. ATENOLOL [Concomitant]
  6. PRINIVIL [Concomitant]
  7. EFFEXOR [Concomitant]
  8. ASPIRIN [Concomitant]

REACTIONS (1)
  - LIVER FUNCTION TEST ABNORMAL [None]
